FAERS Safety Report 19887309 (Version 1)
Quarter: 2021Q3

REPORT INFORMATION
  Report Type: Spontaneous
  Country: JP (occurrence: JP)
  Receive Date: 20210928
  Receipt Date: 20210928
  Transmission Date: 20211014
  Serious: Yes (Other)
  Sender: FDA-Public Use
  Company Number: JP-TEVA-2021-JP-004541J

PATIENT
  Sex: Female

DRUGS (1)
  1. METOCLOPRAMIDE INJECTION 10MG ^TEVA^ [Suspect]
     Active Substance: METOCLOPRAMIDE
     Indication: PRODUCT USED FOR UNKNOWN INDICATION
     Route: 058

REACTIONS (19)
  - Visual impairment [Recovering/Resolving]
  - Photopsia [Recovering/Resolving]
  - Dysuria [Recovering/Resolving]
  - Needle track marks [Recovering/Resolving]
  - Diarrhoea [Recovering/Resolving]
  - Angina pectoris [Recovering/Resolving]
  - Headache [Recovering/Resolving]
  - Face oedema [Recovering/Resolving]
  - Palpitations [Recovering/Resolving]
  - Gastrointestinal sounds abnormal [Recovering/Resolving]
  - Skin discolouration [Recovering/Resolving]
  - Breast discharge [Recovering/Resolving]
  - Wrong product administered [Unknown]
  - Dyspnoea [Recovering/Resolving]
  - Hyperhidrosis [Recovering/Resolving]
  - Tremor [Recovering/Resolving]
  - Injection site pain [Recovering/Resolving]
  - Injection site mass [Recovering/Resolving]
  - Musculoskeletal stiffness [Recovering/Resolving]

NARRATIVE: CASE EVENT DATE: 20210806
